FAERS Safety Report 10444753 (Version 1)
Quarter: 2014Q3

REPORT INFORMATION
  Report Type: Spontaneous
  Country: US (occurrence: US)
  Receive Date: 20140910
  Receipt Date: 20140910
  Transmission Date: 20150326
  Serious: No
  Sender: FDA-Public Use
  Company Number: US-009507513-1409USA000256

PATIENT
  Sex: Female

DRUGS (1)
  1. NEXPLANON [Suspect]
     Active Substance: ETONOGESTREL
     Indication: CONTRACEPTION
     Dosage: 1 NEXPLANON INJECTION, FREQUENCY UNKNOWN
     Route: 059
     Dates: start: 201407

REACTIONS (1)
  - Implant site hypoaesthesia [Recovered/Resolved]

NARRATIVE: CASE EVENT DATE: 2014
